FAERS Safety Report 12955020 (Version 2)
Quarter: 2017Q1

REPORT INFORMATION
  Report Type: Spontaneous
  Country: US (occurrence: US)
  Receive Date: 20161118
  Receipt Date: 20170221
  Transmission Date: 20170428
  Serious: Yes (Death, Hospitalization)
  Sender: FDA-Public Use
  Company Number: US-JNJFOC-20161118648

PATIENT
  Sex: Female

DRUGS (5)
  1. IMBRUVICA [Suspect]
     Active Substance: IBRUTINIB
     Indication: CHRONIC LYMPHOCYTIC LEUKAEMIA
     Route: 048
     Dates: start: 20140423
  2. SYNTHROID [Concomitant]
     Active Substance: LEVOTHYROXINE SODIUM
  3. IMBRUVICA [Suspect]
     Active Substance: IBRUTINIB
     Indication: CHRONIC LYMPHOCYTIC LEUKAEMIA
     Route: 048
     Dates: start: 201401
  4. ALLOPURINOL. [Concomitant]
     Active Substance: ALLOPURINOL
  5. COQ10 [Concomitant]
     Active Substance: UBIDECARENONE

REACTIONS (5)
  - Mental status changes [Unknown]
  - Encephalopathy [Fatal]
  - Pyrexia [Fatal]
  - Respiratory tract infection [Fatal]
  - Respiratory failure [Fatal]
